FAERS Safety Report 9938144 (Version 1)
Quarter: 2014Q1

REPORT INFORMATION
  Report Type: Spontaneous
  Country: BR (occurrence: BR)
  Receive Date: 20140303
  Receipt Date: 20140303
  Transmission Date: 20141002
  Serious: Yes (Other)
  Sender: FDA-Public Use
  Company Number: BR-BRISTOL-MYERS SQUIBB COMPANY-20257580

PATIENT
  Age: 65 Year
  Sex: Female

DRUGS (3)
  1. ONGLYZA TABS 5 MG [Suspect]
     Dosage: DOSE INCREASED TO 5MG TWICE PER DAY.
     Route: 048
  2. SPIRONOLACTONE [Concomitant]
  3. MIRTAZAPINE [Concomitant]

REACTIONS (2)
  - Overdose [Unknown]
  - Product quality issue [Unknown]
